FAERS Safety Report 25103333 (Version 2)
Quarter: 2025Q3

REPORT INFORMATION
  Report Type: Other
  Country: CA (occurrence: CA)
  Receive Date: 20250321
  Receipt Date: 20250704
  Transmission Date: 20251021
  Serious: Yes (Death, Other)
  Sender: APOTEX
  Company Number: CA-APOTEX-2025AP003407

PATIENT
  Age: 85 Year
  Sex: Female

DRUGS (5)
  1. RAMIPRIL [Suspect]
     Active Substance: RAMIPRIL
     Indication: Product used for unknown indication
     Route: 065
  2. SILIQ [Suspect]
     Active Substance: BRODALUMAB
     Indication: Psoriasis
     Dosage: 210 MILLIGRAM, Q.O.WK., THERAPY DURATION: 730.0 UNSPECIFIED UNIT
     Route: 058
  3. SILIQ [Suspect]
     Active Substance: BRODALUMAB
     Dosage: 210 MILLIGRAM, Q.O.WK.
     Route: 058
  4. SILIQ [Suspect]
     Active Substance: BRODALUMAB
     Dosage: 210 MILLIGRAM, Q.WK.
     Route: 058
  5. BISOPROLOL [Concomitant]
     Active Substance: BISOPROLOL
     Indication: Product used for unknown indication
     Route: 065

REACTIONS (12)
  - Blood pressure increased [Fatal]
  - Brain cancer metastatic [Fatal]
  - Expired product administered [Fatal]
  - Head and neck cancer metastatic [Fatal]
  - Neoplasm malignant [Fatal]
  - Tooth extraction [Fatal]
  - Asthenia [Fatal]
  - Respiratory rate increased [Fatal]
  - Heart rate increased [Fatal]
  - Hypersomnia [Fatal]
  - Dysarthria [Fatal]
  - Feeding disorder [Fatal]
